FAERS Safety Report 17629049 (Version 1)
Quarter: 2020Q2

REPORT INFORMATION
  Report Type: Spontaneous
  Country: US (occurrence: US)
  Receive Date: 20200406
  Receipt Date: 20200406
  Transmission Date: 20200713
  Serious: No
  Sender: FDA-Public Use
  Company Number: US-ALLERGAN-1930492US

PATIENT
  Age: 74 Year
  Sex: Male

DRUGS (7)
  1. UNSPECIFIED HIGH CHOLESTEROL MEDICATION [Concomitant]
     Active Substance: UNSPECIFIED INGREDIENT
  2. ASACOL [Suspect]
     Active Substance: MESALAMINE
     Dosage: 3 DF, Q12H
     Route: 048
  3. PREDNISOLONE. [Suspect]
     Active Substance: PREDNISOLONE
     Indication: COLITIS ULCERATIVE
  4. ASPIRIN. [Concomitant]
     Active Substance: ASPIRIN
  5. ASACOL [Suspect]
     Active Substance: MESALAMINE
     Indication: COLITIS ULCERATIVE
     Dosage: 3 DOSES A DAY WITH 1-2 TABLETS EACH TIME
     Route: 048
  6. UNSPECIFIED MEDICATION FOR SMALL HEAT BLOCKAGE IN ONE OF THE ARTERY [Concomitant]
  7. FOLIC ACID. [Concomitant]
     Active Substance: FOLIC ACID

REACTIONS (6)
  - Blood pressure increased [Not Recovered/Not Resolved]
  - Dizziness [Not Recovered/Not Resolved]
  - Nausea [Recovered/Resolved]
  - Inappropriate schedule of product administration [Unknown]
  - Rash pruritic [Recovered/Resolved]
  - Chest discomfort [Recovered/Resolved]
